FAERS Safety Report 6414225-7 (Version None)
Quarter: 2009Q4

REPORT INFORMATION
  Report Type: 
  Country: None (occurrence: None)
  Receive Date: 20091026
  Receipt Date: 20091019
  Transmission Date: 20100525
  Serious: Yes (Other)
  Sender: FDA-Public Use
  Company Number: CHPA2009US20632

PATIENT
  Age: 42 Year
  Sex: Male
  Weight: 90.703 kg

DRUGS (1)
  1. THERAFLU DAYTIME COLD + COUGH (NCH) [Suspect]
     Indication: PYREXIA
     Dosage: 1 THIN STRIP, ONCE/SINGLE
     Route: 048
     Dates: start: 20091019, end: 20091019

REACTIONS (3)
  - DIZZINESS [None]
  - HALLUCINATION [None]
  - OFF LABEL USE [None]
